FAERS Safety Report 20633402 (Version 1)
Quarter: 2022Q1

REPORT INFORMATION
  Report Type: Spontaneous
  Country: CA (occurrence: CA)
  Receive Date: 20220324
  Receipt Date: 20220324
  Transmission Date: 20220423
  Serious: Yes (Disabling)
  Sender: FDA-Public Use
  Company Number: CA-NAPPMUNDI-GBR-2022-0096238

PATIENT
  Age: 51 Year
  Sex: Male

DRUGS (1)
  1. HYDROMORPHONE HYDROCHLORIDE [Suspect]
     Active Substance: HYDROMORPHONE HYDROCHLORIDE
     Indication: Intervertebral disc protrusion
     Dosage: 36 MG, 3 EVERY 1 DAYS
     Route: 065

REACTIONS (4)
  - Aggression [Unknown]
  - Hyperhidrosis [Unknown]
  - Irritability [Unknown]
  - Tremor [Unknown]
